FAERS Safety Report 17530539 (Version 1)
Quarter: 2020Q1

REPORT INFORMATION
  Report Type: Spontaneous
  Country: FR (occurrence: FR)
  Receive Date: 20200311
  Receipt Date: 20200311
  Transmission Date: 20200409
  Serious: Yes (Life-Threatening)
  Sender: FDA-Public Use
  Company Number: FR-MYLANLABS-2020M1025937

PATIENT
  Age: 62 Year
  Sex: Female
  Weight: 111 kg

DRUGS (3)
  1. PROPOFOL. [Concomitant]
     Active Substance: PROPOFOL
     Indication: GENERAL ANAESTHESIA
     Dosage: 1 DOSAGE FORM
     Route: 041
     Dates: start: 20200124
  2. ROCURONIUM [Suspect]
     Active Substance: ROCURONIUM BROMIDE
     Indication: GENERAL ANAESTHESIA
     Dosage: 1 DOSAGE FORM
     Route: 041
     Dates: start: 20200124
  3. REMIFENTANIL [Suspect]
     Active Substance: REMIFENTANIL
     Indication: GENERAL ANAESTHESIA
     Dosage: 1 DOSAGE FORM
     Route: 041
     Dates: start: 20200124

REACTIONS (1)
  - Anaphylactoid shock [Recovering/Resolving]

NARRATIVE: CASE EVENT DATE: 20200124
